FAERS Safety Report 22121074 (Version 2)
Quarter: 2023Q2

REPORT INFORMATION
  Report Type: Report from Study
  Country: CH (occurrence: CH)
  Receive Date: 20230321
  Receipt Date: 20230503
  Transmission Date: 20230722
  Serious: Yes (Other)
  Sender: FDA-Public Use
  Company Number: CH-002147023-NVSC2023CH061695

PATIENT
  Sex: Female

DRUGS (1)
  1. KESIMPTA [Suspect]
     Active Substance: OFATUMUMAB
     Indication: Multiple sclerosis
     Dosage: 20 MG, QMO (20 MG/0.4 ML)
     Route: 058
     Dates: start: 20220615

REACTIONS (7)
  - Palpitations [Unknown]
  - Dizziness [Unknown]
  - Influenza like illness [Unknown]
  - Injection site induration [Unknown]
  - Hypotension [Unknown]
  - Tachycardia [Unknown]
  - Vertigo [Unknown]
